FAERS Safety Report 4946643-8 (Version None)
Quarter: 2006Q1

REPORT INFORMATION
  Report Type: 
  Country: None (occurrence: None)
  Receive Date: 20060317
  Receipt Date: 20060315
  Transmission Date: 20060701
  Serious: Yes (Death, Hospitalization)
  Sender: FDA-Public Use
  Company Number: NSADSS2002038118

PATIENT
  Sex: Male
  Weight: 75.3 kg

DRUGS (13)
  1. REMICADE [Suspect]
     Route: 041
  2. REMICADE [Suspect]
     Indication: CROHN'S DISEASE
     Route: 041
  3. REMICADE [Suspect]
     Indication: RHEUMATOID ARTHRITIS
     Route: 041
  4. ACTIGALL [Concomitant]
     Route: 048
  5. NEXIUM [Concomitant]
  6. AZULFIDINE [Concomitant]
     Indication: RHEUMATOID ARTHRITIS
     Route: 048
     Dates: start: 20000801
  7. AZULFIDINE [Concomitant]
     Indication: CROHN'S DISEASE
     Route: 048
     Dates: start: 20000801
  8. VIOXX [Concomitant]
     Route: 048
  9. SOTALOL HCL [Concomitant]
  10. FLONASE [Concomitant]
  11. SOTALOL HCL [Concomitant]
  12. ASPIRIN [Concomitant]
  13. ASACOL [Concomitant]

REACTIONS (4)
  - ACUTE RESPIRATORY DISTRESS SYNDROME [None]
  - ANTIPHOSPHOLIPID SYNDROME [None]
  - PNEUMOCYSTIS JIROVECI INFECTION [None]
  - PNEUMOCYSTIS JIROVECI PNEUMONIA [None]
